FAERS Safety Report 17517150 (Version 1)
Quarter: 2020Q1

REPORT INFORMATION
  Report Type: Spontaneous
  Country: US (occurrence: US)
  Receive Date: 20200307
  Receipt Date: 20200307
  Transmission Date: 20200409
  Serious: No
  Sender: FDA-Public Use
  Company Number: None

PATIENT
  Age: 61 Year
  Sex: Female

DRUGS (3)
  1. CLARITIN [Concomitant]
     Active Substance: LORATADINE
  2. PEPCID [Concomitant]
     Active Substance: FAMOTIDINE
  3. MONTELUKAST [Suspect]
     Active Substance: MONTELUKAST SODIUM
     Indication: HYPERSENSITIVITY
     Dates: start: 20200227, end: 20200304

REACTIONS (8)
  - Tremor [None]
  - Agitation [None]
  - Depression [None]
  - Hyperhidrosis [None]
  - Malaise [None]
  - Insomnia [None]
  - Irritability [None]
  - Crying [None]

NARRATIVE: CASE EVENT DATE: 20200304
